FAERS Safety Report 11076642 (Version 1)
Quarter: 2015Q2

REPORT INFORMATION
  Report Type: Spontaneous
  Country: US (occurrence: US)
  Receive Date: 20150429
  Receipt Date: 20150429
  Transmission Date: 20150821
  Serious: No
  Sender: FDA-Public Use
  Company Number: US-ELI_LILLY_AND_COMPANY-US201504008463

PATIENT
  Age: 85 Year
  Sex: Male

DRUGS (5)
  1. INSULIN HUMAN [Suspect]
     Active Substance: INSULIN HUMAN
     Dosage: 11 U, SINGLE
     Route: 065
     Dates: start: 20150422
  2. HUMULIN N [Suspect]
     Active Substance: INSULIN HUMAN
     Indication: TYPE 2 DIABETES MELLITUS
     Dosage: UNK
     Route: 065
     Dates: start: 1995
  3. HUMULIN N [Suspect]
     Active Substance: INSULIN HUMAN
     Dosage: 8 U, SINGLE
     Route: 065
     Dates: start: 20150422
  4. HUMULIN N [Suspect]
     Active Substance: INSULIN HUMAN
     Dosage: 14 U, SINGLE
     Route: 065
     Dates: start: 20150422
  5. INSULIN HUMAN [Suspect]
     Active Substance: INSULIN HUMAN
     Indication: TYPE 2 DIABETES MELLITUS
     Dosage: 7 U, SINGLE
     Route: 065
     Dates: start: 20150422

REACTIONS (2)
  - Blood glucose decreased [Unknown]
  - Tremor [Unknown]

NARRATIVE: CASE EVENT DATE: 20150423
